FAERS Safety Report 5285517-2 (Version None)
Quarter: 2007Q1

REPORT INFORMATION
  Report Type: 
  Country: None (occurrence: None)
  Receive Date: 20070328
  Receipt Date: 20070317
  Transmission Date: 20070707
  Serious: Yes (Life-Threatening, Other)
  Sender: FDA-Public Use
  Company Number: VER_0046_2007

PATIENT
  Age: 42 Year
  Sex: Female

DRUGS (3)
  1. EPINEPHRINE [Suspect]
     Indication: HYPERSENSITIVITY
     Dosage: 0.3 MG PRN SC
     Route: 058
     Dates: start: 20061101
  2. EPINEPHRINE [Suspect]
     Indication: THROAT TIGHTNESS
     Dosage: 0.3 MG PRN SC
     Route: 058
     Dates: start: 20061101
  3. ASTELIN [Concomitant]

REACTIONS (4)
  - DEVICE MALFUNCTION [None]
  - INCORRECT DOSE ADMINISTERED [None]
  - NO THERAPEUTIC RESPONSE [None]
  - REFUSAL OF TREATMENT BY PATIENT [None]
